FAERS Safety Report 8854100 (Version 2)
Quarter: 2012Q4

REPORT INFORMATION
  Report Type: 
  Country: US (occurrence: None)
  Receive Date: 20121023
  Receipt Date: 20121023
  Transmission Date: 20130627
  Serious: No
  Sender: FDA-Public Use
  Company Number: None

PATIENT
  Age: 51 Year
  Sex: Female
  Weight: 70.31 kg

DRUGS (2)
  1. LIDOCAINE [Suspect]
  2. EPINEPHRINE [Suspect]

REACTIONS (5)
  - Headache [None]
  - Muscular weakness [None]
  - Musculoskeletal stiffness [None]
  - Erythema [None]
  - Impaired healing [None]
